FAERS Safety Report 14938987 (Version 4)
Quarter: 2019Q2

REPORT INFORMATION
  Report Type: Spontaneous
  Country: JP (occurrence: JP)
  Receive Date: 20180525
  Receipt Date: 20190408
  Transmission Date: 20190711
  Serious: Yes (Other)
  Sender: FDA-Public Use
  Company Number: JP-ACTELION-A-CH2018-172495

PATIENT
  Age: 2 Year
  Sex: Female

DRUGS (7)
  1. OPSUMIT [Suspect]
     Active Substance: MACITENTAN
     Indication: PULMONARY ARTERIAL HYPERTENSION
     Dosage: 1.1 MG, QD
     Route: 048
     Dates: start: 20161212
  2. SAMSCA [Concomitant]
     Active Substance: TOLVAPTAN
  3. FUROSEMIDE. [Concomitant]
     Active Substance: FUROSEMIDE
  4. ASPIRIN. [Concomitant]
     Active Substance: ASPIRIN
  5. ADCIRCA [Concomitant]
     Active Substance: TADALAFIL
  6. WARFARIN [Concomitant]
     Active Substance: WARFARIN
  7. ALDACTONE A [Concomitant]
     Active Substance: SPIRONOLACTONE

REACTIONS (1)
  - Thrombocytopenic purpura [Recovering/Resolving]

NARRATIVE: CASE EVENT DATE: 20180505
